FAERS Safety Report 22355958 (Version 9)
Quarter: 2024Q1

REPORT INFORMATION
  Report Type: Spontaneous
  Country: US (occurrence: US)
  Receive Date: 20230523
  Receipt Date: 20240206
  Transmission Date: 20240409
  Serious: Yes (Other)
  Sender: FDA-Public Use
  Company Number: US-PFIZER INC-202300198161

PATIENT
  Age: 68 Year
  Sex: Male
  Weight: 87.088 kg

DRUGS (6)
  1. OXBRYTA [Suspect]
     Active Substance: VOXELOTOR
     Indication: Sickle cell anaemia
     Dosage: 1500 MG, 1X/DAY
     Route: 048
  2. OXBRYTA [Suspect]
     Active Substance: VOXELOTOR
     Indication: Sickle cell disease
     Dosage: 1500 MG, 1X/DAY
     Route: 048
     Dates: start: 202201
  3. OXBRYTA [Suspect]
     Active Substance: VOXELOTOR
     Dosage: 3 TABLETS ONCE DAILY
     Route: 048
     Dates: start: 202301
  4. OXBRYTA [Suspect]
     Active Substance: VOXELOTOR
     Dosage: 3 TABLETS DAILY
     Route: 048
     Dates: start: 2023
  5. FOLIC ACID [Concomitant]
     Active Substance: FOLIC ACID
     Dosage: UNK
  6. VITAMIN B COMPLEX [Concomitant]
     Active Substance: CYANOCOBALAMIN\DEXPANTHENOL\NIACINAMIDE\PYRIDOXINE HYDROCHLORIDE\RIBOFLAVIN 5^-PHOSPHATE SODIUM\THIA
     Dosage: UNK

REACTIONS (16)
  - Pneumonia [Unknown]
  - Weight decreased [Not Recovered/Not Resolved]
  - Prostatic operation [Unknown]
  - Hernia [Unknown]
  - Pleurisy [Recovering/Resolving]
  - Diarrhoea [Recovered/Resolved]
  - Illness [Recovering/Resolving]
  - Fatigue [Unknown]
  - Influenza [Unknown]
  - Hepatic enzyme abnormal [Unknown]
  - Lung disorder [Unknown]
  - Nasopharyngitis [Unknown]
  - Pain [Unknown]
  - Vitamin D deficiency [Unknown]
  - Haemoglobin decreased [Unknown]
  - Sickle cell disease [Unknown]

NARRATIVE: CASE EVENT DATE: 20211101
